FAERS Safety Report 9779178 (Version 1)
Quarter: 2013Q4

REPORT INFORMATION
  Report Type: Spontaneous
  Country: US (occurrence: US)
  Receive Date: 20131223
  Receipt Date: 20131223
  Transmission Date: 20140711
  Serious: No
  Sender: FDA-Public Use
  Company Number: US-ENDO PHARMACEUTICALS INC.-OPCR20130349

PATIENT
  Age: 51 Year
  Sex: Female

DRUGS (1)
  1. OPANA ER 5MG [Suspect]
     Indication: PAIN
     Route: 048

REACTIONS (1)
  - Somnambulism [Unknown]
